FAERS Safety Report 8888308 (Version 1)
Quarter: 2012Q4

REPORT INFORMATION
  Report Type: 
  Country: US (occurrence: US)
  Receive Date: 20121106
  Receipt Date: 20121106
  Transmission Date: 20130627
  Serious: No
  Sender: FDA-Public Use
  Company Number: US-PFIZER INC-2012274936

PATIENT
  Age: 58 Year
  Sex: Female
  Weight: 86.2 kg

DRUGS (8)
  1. CELEBREX [Suspect]
     Indication: LOW BACK PAIN
     Dosage: 200 mg, 1x/day
     Route: 048
     Dates: start: 201208
  2. CYMBALTA [Concomitant]
     Dosage: UNK
  3. VESICARE [Concomitant]
     Dosage: UNK
  4. OXYTROL [Concomitant]
     Indication: BLADDER DISORDER
     Dosage: UNK
  5. ESTRADIOL [Concomitant]
     Dosage: UNK
  6. DEXILANT [Concomitant]
     Dosage: UNK
  7. CALCIUM/VITAMIN D [Concomitant]
     Dosage: UNK
  8. MULTIVITAMINS [Concomitant]
     Dosage: UNK

REACTIONS (1)
  - Drug ineffective [Unknown]
